FAERS Safety Report 7228812-X (Version None)
Quarter: 2011Q1

REPORT INFORMATION
  Report Type: 
  Country: None (occurrence: None)
  Receive Date: 20110117
  Receipt Date: 20100203
  Transmission Date: 20110831
  Serious: No
  Sender: FDA-Public Use
  Company Number: 2010BI004048

PATIENT
  Age: 43 Year
  Sex: Female

DRUGS (1)
  1. TYSABRI [Suspect]
     Indication: MULTIPLE SCLEROSIS
     Route: 042
     Dates: start: 20090310

REACTIONS (6)
  - ARTHRITIS [None]
  - ARTHRALGIA [None]
  - GAIT DISTURBANCE [None]
  - FATIGUE [None]
  - ARTHROPATHY [None]
  - ASTHENIA [None]
